FAERS Safety Report 23825162 (Version 5)
Quarter: 2024Q4

REPORT INFORMATION
  Report Type: Spontaneous
  Country: US (occurrence: US)
  Receive Date: 20240507
  Receipt Date: 20241205
  Transmission Date: 20250115
  Serious: No
  Sender: PFIZER
  Company Number: US-PFIZER INC-202400100453

PATIENT
  Age: 9 Year
  Sex: Male
  Weight: 27.211 kg

DRUGS (2)
  1. GENOTROPIN [Suspect]
     Active Substance: SOMATROPIN
     Indication: Growth hormone deficiency
     Dosage: 1.2 MG, 1X/DAY
  2. LACOSAMIDE [Concomitant]
     Active Substance: LACOSAMIDE
     Indication: Seizure
     Dosage: UNK

REACTIONS (4)
  - Drug dose omission by device [Unknown]
  - Device use issue [Unknown]
  - Device malfunction [Unknown]
  - Device information output issue [Unknown]
